FAERS Safety Report 5574158-5 (Version None)
Quarter: 2007Q4

REPORT INFORMATION
  Report Type: 
  Country: None (occurrence: None)
  Receive Date: 20071221
  Receipt Date: 20071217
  Transmission Date: 20080405
  Serious: Yes (Hospitalization, Other)
  Sender: FDA-Public Use
  Company Number: 2007S1013466

PATIENT
  Age: 27 Year
  Sex: Female

DRUGS (3)
  1. EXTENDED PHYENYTOIN SODIUM [Suspect]
     Indication: CONVULSION
     Dosage: 300 MG; DAILY; ORAL, 500 MG; DAILY; ORAL
     Route: 048
     Dates: end: 20071214
  2. EXTENDED PHYENYTOIN SODIUM [Suspect]
     Indication: CONVULSION
     Dosage: 300 MG; DAILY; ORAL, 500 MG; DAILY; ORAL
     Route: 048
     Dates: start: 20071214
  3. DEPAKOTE [Concomitant]

REACTIONS (5)
  - ANTICONVULSANT DRUG LEVEL DECREASED [None]
  - COLLAPSE OF LUNG [None]
  - CONVULSION [None]
  - HEART RATE DECREASED [None]
  - PHARMACEUTICAL PRODUCT COMPLAINT [None]
